FAERS Safety Report 8341882 (Version 3)
Quarter: 2013Q1

REPORT INFORMATION
  Report Type: Spontaneous
  Country: US (occurrence: US)
  Receive Date: 20120118
  Receipt Date: 20130228
  Transmission Date: 20140127
  Serious: Yes (Other)
  Sender: FDA-Public Use
  Company Number: US-ROCHE-1031092

PATIENT
  Age: 29 Year
  Sex: Female
  Weight: 95.34 kg

DRUGS (4)
  1. ACCUTANE [Suspect]
     Indication: ACNE
     Route: 048
     Dates: start: 20040318, end: 200407
  2. ACCUTANE [Suspect]
     Indication: ACNE
  3. YASMIN [Concomitant]
     Indication: CONTRACEPTION
  4. ORTHO TRI CYCLEN [Concomitant]
     Indication: CONTRACEPTION

REACTIONS (7)
  - Inflammatory bowel disease [Unknown]
  - Injury [Unknown]
  - Large intestine polyp [Unknown]
  - Diverticulum [Unknown]
  - Irritable bowel syndrome [Unknown]
  - Myalgia [Unknown]
  - Arthralgia [Unknown]
